FAERS Safety Report 11615008 (Version 1)
Quarter: 2015Q4

REPORT INFORMATION
  Report Type: Report from Study
  Country: CO (occurrence: CO)
  Receive Date: 20151009
  Receipt Date: 20151009
  Transmission Date: 20160304
  Serious: Yes (Death, Other)
  Sender: FDA-Public Use
  Company Number: CO-BRISTOL-MYERS SQUIBB COMPANY-BMS-2015-066801

PATIENT
  Age: 60 Year
  Sex: Female
  Weight: 58 kg

DRUGS (1)
  1. CETUXIMAB [Suspect]
     Active Substance: CETUXIMAB
     Indication: COLORECTAL CANCER METASTATIC
     Dosage: 500 MG, ONCE IN 15 DAYS
     Route: 042
     Dates: start: 20150406

REACTIONS (4)
  - Choking [Fatal]
  - Respiratory failure [Fatal]
  - Gallbladder operation [Unknown]
  - Anxiety [Unknown]

NARRATIVE: CASE EVENT DATE: 20150916
